FAERS Safety Report 17638407 (Version 2)
Quarter: 2020Q3

REPORT INFORMATION
  Report Type: Spontaneous
  Country: AU (occurrence: AU)
  Receive Date: 20200407
  Receipt Date: 20200702
  Transmission Date: 20201102
  Serious: No
  Sender: FDA-Public Use
  Company Number: AU-ASTRAZENECA-2020SE23275

PATIENT
  Age: 24379 Day
  Sex: Female

DRUGS (4)
  1. THYROXIN [Concomitant]
     Active Substance: LEVOTHYROXINE
     Indication: THYROIDECTOMY
     Route: 065
     Dates: start: 2016
  2. AMLODIPINE [Concomitant]
     Active Substance: AMLODIPINE BESYLATE
     Indication: BLOOD PRESSURE ABNORMAL
     Route: 065
     Dates: start: 2016
  3. SYMBICORT [Suspect]
     Active Substance: BUDESONIDE\FORMOTEROL FUMARATE DIHYDRATE
     Indication: ASTHMA
     Dosage: 200/6, 2 PUFFS BD USED WHEN EXPERIENCING ASTHMA SYMPTOMS USED PERIODICALLY 2?3 TIMES PER YEAR FOR...
     Route: 055
     Dates: start: 20191120, end: 201912
  4. BRICANYL [Concomitant]
     Active Substance: TERBUTALINE SULFATE
     Route: 055

REACTIONS (2)
  - Device delivery system issue [Unknown]
  - Device ineffective [Recovered/Resolved]

NARRATIVE: CASE EVENT DATE: 20191120
